FAERS Safety Report 8532374-4 (Version None)
Quarter: 2012Q3

REPORT INFORMATION
  Report Type: 
  Country: None (occurrence: None)
  Receive Date: 20120724
  Receipt Date: 20120716
  Transmission Date: 20120928
  Serious: No
  Sender: FDA-Public Use
  Company Number: US-BIOGENIDEC-2012BI025991

PATIENT
  Sex: Female

DRUGS (2)
  1. TYSABRI [Suspect]
     Indication: MULTIPLE SCLEROSIS
     Route: 042
     Dates: start: 20070301
  2. TYSABRI [Suspect]
     Route: 042
     Dates: start: 20070701, end: 20100301

REACTIONS (1)
  - MULTIPLE SCLEROSIS RELAPSE [None]
